FAERS Safety Report 25574077 (Version 2)
Quarter: 2025Q3

REPORT INFORMATION
  Report Type: Report from Study
  Country: CA (occurrence: CA)
  Receive Date: 20250717
  Receipt Date: 20250722
  Transmission Date: 20251021
  Serious: Yes (Hospitalization, Other)
  Sender: MERCK SHARP & DOHME LLC
  Company Number: CA-009507513-2274492

PATIENT
  Sex: Female
  Weight: 90.7 kg

DRUGS (27)
  1. WINREVAIR [Suspect]
     Active Substance: SOTATERCEPT-CSRK
     Indication: Pulmonary arterial hypertension
     Route: 065
     Dates: start: 20250402
  2. WINREVAIR [Suspect]
     Active Substance: SOTATERCEPT-CSRK
  3. WINREVAIR [Suspect]
     Active Substance: SOTATERCEPT-CSRK
  4. WINREVAIR [Suspect]
     Active Substance: SOTATERCEPT-CSRK
  5. WINREVAIR [Suspect]
     Active Substance: SOTATERCEPT-CSRK
  6. WINREVAIR [Suspect]
     Active Substance: SOTATERCEPT-CSRK
  7. WINREVAIR [Suspect]
     Active Substance: SOTATERCEPT-CSRK
  8. WINREVAIR [Suspect]
     Active Substance: SOTATERCEPT-CSRK
  9. WINREVAIR [Suspect]
     Active Substance: SOTATERCEPT-CSRK
  10. WINREVAIR [Suspect]
     Active Substance: SOTATERCEPT-CSRK
  11. WINREVAIR [Suspect]
     Active Substance: SOTATERCEPT-CSRK
  12. WINREVAIR [Suspect]
     Active Substance: SOTATERCEPT-CSRK
  13. WINREVAIR [Suspect]
     Active Substance: SOTATERCEPT-CSRK
     Indication: Pulmonary arterial hypertension
     Dosage: 62 MG (0.7 MG/KG), EVERY 3 WEEKS
     Route: 058
     Dates: start: 20250402
  14. WINREVAIR [Suspect]
     Active Substance: SOTATERCEPT-CSRK
  15. WINREVAIR [Suspect]
     Active Substance: SOTATERCEPT-CSRK
  16. WINREVAIR [Suspect]
     Active Substance: SOTATERCEPT-CSRK
  17. MACITENTAN [Concomitant]
     Active Substance: MACITENTAN
  18. TADALAFIL [Concomitant]
     Active Substance: TADALAFIL
  19. Treprostinil IV [Concomitant]
     Route: 042
  20. APIXABAN [Concomitant]
     Active Substance: APIXABAN
  21. DAPAGLIFLOZIN [Concomitant]
     Active Substance: DAPAGLIFLOZIN
  22. FUROSEMIDE [Concomitant]
     Active Substance: FUROSEMIDE
  23. METHIMAZOLE [Concomitant]
     Active Substance: METHIMAZOLE
  24. POTASSIUM [Concomitant]
     Active Substance: POTASSIUM
  25. PROPRANOLOL [Concomitant]
     Active Substance: PROPRANOLOL HYDROCHLORIDE
  26. SPIRONOLACTONE [Concomitant]
     Active Substance: SPIRONOLACTONE
  27. METHAMPHETAMINE [Suspect]
     Active Substance: METHAMPHETAMINE
     Route: 065

REACTIONS (11)
  - Complication associated with device [Recovered/Resolved]
  - Haemoglobin increased [Not Recovered/Not Resolved]
  - Headache [Unknown]
  - Thyroid disorder [Not Recovered/Not Resolved]
  - Therapy change [Unknown]
  - Hospitalisation [Recovered/Resolved]
  - Hypersomnia [Not Recovered/Not Resolved]
  - Flushing [Unknown]
  - Fatigue [Not Recovered/Not Resolved]
  - Haemarthrosis [Unknown]
  - Joint injury [Unknown]

NARRATIVE: CASE EVENT DATE: 20250101
